FAERS Safety Report 23279523 (Version 2)
Quarter: 2024Q3

REPORT INFORMATION
  Report Type: Spontaneous
  Country: US (occurrence: US)
  Receive Date: 20231210
  Receipt Date: 20240925
  Transmission Date: 20241016
  Serious: Yes (Other)
  Sender: AUROBINDO
  Company Number: US-AUROBINDO-AUR-APL-2023-076916

PATIENT
  Age: 3 Year
  Sex: Male
  Weight: 12.9 kg

DRUGS (2)
  1. TOPIRAMATE [Suspect]
     Active Substance: TOPIRAMATE
     Indication: Seizure
     Dosage: UNK
     Route: 065
  2. PEDIALYTE [Concomitant]
     Active Substance: POTASSIUM CITRATE\SODIUM CITRATE\ZINC
     Indication: Product used for unknown indication
     Dosage: UNK
     Route: 065

REACTIONS (3)
  - Acute kidney injury [Unknown]
  - Hypercalcaemia [Recovered/Resolved]
  - Hypercalciuria [Recovered/Resolved]
